FAERS Safety Report 5726999-9 (Version None)
Quarter: 2008Q2

REPORT INFORMATION
  Report Type: 
  Country: None (occurrence: None)
  Receive Date: 20080505
  Receipt Date: 20080429
  Transmission Date: 20081010
  Serious: Yes (Other)
  Sender: FDA-Public Use
  Company Number: GB-ELI_LILLY_AND_COMPANY-GB200804001437

PATIENT
  Sex: Male

DRUGS (4)
  1. ZYPREXA [Suspect]
     Indication: SCHIZOPHRENIA
     Dosage: 10 MG, DAILY (1/D)
     Dates: start: 20070801
  2. PROCYCLIDINE HYDROCHLORIDE 2MG TAB [Concomitant]
     Dosage: 5 MG, DAILY (1/D)
  3. ZOPICLONE [Concomitant]
     Dosage: UNK, AS NEEDED
  4. FLUPENTIXOL [Concomitant]

REACTIONS (2)
  - ANAEMIA [None]
  - PANCYTOPENIA [None]
